FAERS Safety Report 7409832-9 (Version None)
Quarter: 2011Q2

REPORT INFORMATION
  Report Type: 
  Country: None (occurrence: None)
  Receive Date: 20110412
  Receipt Date: 20110405
  Transmission Date: 20111010
  Serious: Yes (Death, Other)
  Sender: FDA-Public Use
  Company Number: US-ELI_LILLY_AND_COMPANY-US201101005910

PATIENT
  Sex: Female

DRUGS (1)
  1. ALIMTA [Suspect]

REACTIONS (2)
  - HOSPICE CARE [None]
  - NEOPLASM MALIGNANT [None]
